FAERS Safety Report 6201314-5 (Version None)
Quarter: 2009Q2

REPORT INFORMATION
  Report Type: 
  Country: None (occurrence: None)
  Receive Date: 20090526
  Receipt Date: 20090515
  Transmission Date: 20091009
  Serious: Yes (Hospitalization)
  Sender: FDA-Public Use
  Company Number: PHHY2009JP16082

PATIENT
  Age: 17 Year
  Sex: Male

DRUGS (2)
  1. CYCLOSPORINE [Suspect]
     Indication: NEPHROTIC SYNDROME
     Dosage: UNK
     Route: 048
  2. PREDNISOLONE [Concomitant]
     Indication: NEPHROTIC SYNDROME
     Route: 048

REACTIONS (11)
  - ACTIVATED PARTIAL THROMBOPLASTIN TIME PROLONGED [None]
  - BLOOD LACTATE DEHYDROGENASE INCREASED [None]
  - BLOOD POTASSIUM INCREASED [None]
  - BLOOD PRESSURE SYSTOLIC INCREASED [None]
  - ESSENTIAL THROMBOCYTHAEMIA [None]
  - EYELID OEDEMA [None]
  - HYPERLIPIDAEMIA [None]
  - HYPOPROTEINAEMIA [None]
  - MEGAKARYOCYTES INCREASED [None]
  - OEDEMA PERIPHERAL [None]
  - PROTEIN URINE PRESENT [None]
